FAERS Safety Report 13810388 (Version 1)
Quarter: 2017Q3

REPORT INFORMATION
  Report Type: Spontaneous
  Country: US (occurrence: US)
  Receive Date: 20170728
  Receipt Date: 20170728
  Transmission Date: 20171127
  Serious: No
  Sender: FDA-Public Use
  Company Number: US-CELGENEUS-USA-20170707566

PATIENT
  Sex: Female

DRUGS (5)
  1. THALOMID [Suspect]
     Active Substance: THALIDOMIDE
     Dosage: 150-50MG
     Route: 048
     Dates: start: 201704
  2. THALOMID [Suspect]
     Active Substance: THALIDOMIDE
     Dosage: 50 MILLIGRAM
     Route: 048
     Dates: start: 201606
  3. THALOMID [Suspect]
     Active Substance: THALIDOMIDE
     Dosage: 50 MILLIGRAM
     Route: 048
     Dates: start: 201707
  4. THALOMID [Suspect]
     Active Substance: THALIDOMIDE
     Indication: PLASMA CELL MYELOMA
     Dosage: 200 MILLIGRAM
     Route: 048
     Dates: start: 201602
  5. THALOMID [Suspect]
     Active Substance: THALIDOMIDE
     Dosage: 150 MILLIGRAM
     Route: 048
     Dates: start: 201604

REACTIONS (1)
  - Drug intolerance [Unknown]
